FAERS Safety Report 6294002-0 (Version None)
Quarter: 2009Q3

REPORT INFORMATION
  Report Type: 
  Country: None (occurrence: None)
  Receive Date: 20090803
  Receipt Date: 20080714
  Transmission Date: 20100115
  Serious: No
  Sender: FDA-Public Use
  Company Number: A0737586A

PATIENT
  Age: 25 Year
  Sex: Female

DRUGS (5)
  1. NICORETTE [Suspect]
  2. NICORETTE (MINT) [Suspect]
  3. NICORETTE [Suspect]
  4. LAMICTAL [Concomitant]
  5. ABILIFY [Concomitant]

REACTIONS (5)
  - ABDOMINAL PAIN [None]
  - DRUG INTERACTION [None]
  - INTENTIONAL DRUG MISUSE [None]
  - SOMNOLENCE [None]
  - VOMITING [None]
